FAERS Safety Report 8105802-6 (Version None)
Quarter: 2012Q1

REPORT INFORMATION
  Report Type: 
  Country: None (occurrence: None)
  Receive Date: 20120201
  Receipt Date: 20120130
  Transmission Date: 20120608
  Serious: No
  Sender: FDA-Public Use
  Company Number: US-PFIZER INC-2012026133

PATIENT
  Sex: Female
  Weight: 53.515 kg

DRUGS (6)
  1. IBUPROFEN [Suspect]
     Indication: FIBROMYALGIA
     Dosage: UNK
     Dates: start: 20060101
  2. LYRICA [Suspect]
     Indication: FIBROMYALGIA
     Dosage: 100 MG, 2X/DAY
     Dates: start: 20110101, end: 20110801
  3. NAPROSYN [Suspect]
     Indication: PAIN
  4. IBUPROFEN [Suspect]
     Indication: PAIN
  5. SYMBICORT [Concomitant]
     Indication: EMPHYSEMA
     Dosage: UNK
  6. NAPROSYN [Suspect]
     Indication: FIBROMYALGIA
     Dosage: 500 MG, UNK
     Route: 048
     Dates: start: 20060101

REACTIONS (5)
  - ABDOMINAL PAIN UPPER [None]
  - CONSTIPATION [None]
  - DRUG INEFFECTIVE [None]
  - ABDOMINAL DISCOMFORT [None]
  - DIARRHOEA [None]
